FAERS Safety Report 5023923-1 (Version None)
Quarter: 2006Q2

REPORT INFORMATION
  Report Type: 
  Country: None (occurrence: None)
  Receive Date: 20060426
  Receipt Date: 20060213
  Transmission Date: 20061013
  Serious: Yes (Other)
  Sender: FDA-Public Use
  Company Number: 2006022800

PATIENT
  Age: 55 Year
  Sex: Female
  Weight: 77.1115 kg

DRUGS (4)
  1. LYRICA [Suspect]
     Indication: BACK PAIN
     Dosage: 150 MG (50 MG, 3 IN 1 D)
     Dates: start: 20060131, end: 20060207
  2. AROMASIN [Concomitant]
  3. LEVOTHROID [Concomitant]
  4. FLEXERIL [Concomitant]

REACTIONS (1)
  - VISION BLURRED [None]
